FAERS Safety Report 5718968-X (Version None)
Quarter: 2008Q2

REPORT INFORMATION
  Report Type: 
  Country: None (occurrence: None)
  Receive Date: 20080425
  Receipt Date: 20080418
  Transmission Date: 20081010
  Serious: Yes (Other)
  Sender: FDA-Public Use
  Company Number: US-GENENTECH-259470

PATIENT
  Sex: Female
  Weight: 74.376 kg

DRUGS (9)
  1. XOLAIR [Suspect]
     Indication: ASTHMA
     Dosage: 300 MG, SINGLE
     Route: 058
     Dates: start: 20080414
  2. SYMBICORT [Concomitant]
     Indication: ASTHMA
     Dosage: 2 PUFF, BID
     Dates: start: 20080104
  3. QVAR 40 [Concomitant]
     Indication: ASTHMA
     Dosage: 1 PUFF, BID
     Dates: start: 20080404
  4. ADVAIR HFA [Concomitant]
     Indication: DRUG USE FOR UNKNOWN INDICATION
  5. ZYFLO [Concomitant]
     Indication: ASTHMA
     Dosage: 2 TABLET, BID
     Route: 048
     Dates: start: 20071218
  6. THEO [Concomitant]
     Indication: ASTHMA
     Dosage: 100 MG, BID
     Route: 048
     Dates: start: 20080404
  7. ASTELIN [Concomitant]
     Indication: RHINITIS ALLERGIC
     Dosage: 1 UNK, BID
     Dates: start: 20080104
  8. ALEVE [Concomitant]
     Indication: PAIN
     Dosage: 2 TABLET, BID
     Route: 048
     Dates: start: 20080219
  9. PREDNISOLONE [Concomitant]
     Indication: DRUG USE FOR UNKNOWN INDICATION

REACTIONS (3)
  - ANAPHYLACTIC REACTION [None]
  - DYSPNOEA [None]
  - PHARYNGEAL OEDEMA [None]
